FAERS Safety Report 21918617 (Version 2)
Quarter: 2023Q1

REPORT INFORMATION
  Report Type: Report from Study
  Country: NL (occurrence: None)
  Receive Date: 20230127
  Receipt Date: 20230322
  Transmission Date: 20230417
  Serious: Yes (Hospitalization)
  Sender: FDA-Public Use
  Company Number: NL-ROCHE-3250496

PATIENT
  Age: 53 Year
  Sex: Female

DRUGS (6)
  1. ATEZOLIZUMAB [Suspect]
     Active Substance: ATEZOLIZUMAB
     Indication: Triple negative breast cancer
     Route: 041
     Dates: start: 20220428
  2. ATEZOLIZUMAB [Suspect]
     Active Substance: ATEZOLIZUMAB
     Dosage: MOST CURRENT TREATMENT AND ADMINISTRATION DATE: 18/AUG/2022
     Route: 042
     Dates: start: 20220428
  3. CYCLOPHOSPHAMIDE [Suspect]
     Active Substance: CYCLOPHOSPHAMIDE
     Indication: Triple negative breast cancer
     Route: 042
     Dates: start: 20220428
  4. CYCLOPHOSPHAMIDE [Suspect]
     Active Substance: CYCLOPHOSPHAMIDE
     Dosage: MOST CURRENT TREATMENT AND ADMINISTRATION DATE: 18/AUG/2022.
     Route: 042
     Dates: start: 20220428
  5. CARBOPLATIN [Suspect]
     Active Substance: CARBOPLATIN
     Indication: Triple negative breast cancer
     Route: 042
     Dates: start: 20220428
  6. CARBOPLATIN [Suspect]
     Active Substance: CARBOPLATIN
     Dosage: MOST CURRENT TREATMENT AND ADMINISTRATION DATE: 18/AUG/2022
     Route: 042
     Dates: start: 20220428

REACTIONS (3)
  - Back pain [Recovered/Resolved]
  - Arthralgia [Recovered/Resolved]
  - Abdominal pain [Unknown]

NARRATIVE: CASE EVENT DATE: 20220502
